FAERS Safety Report 6245800-0 (Version None)
Quarter: 2009Q2

REPORT INFORMATION
  Report Type: 
  Country: None (occurrence: None)
  Receive Date: 20090624
  Receipt Date: 20090617
  Transmission Date: 20091009
  Serious: Yes (Other)
  Sender: FDA-Public Use
  Company Number: CERZ-1000307

PATIENT
  Age: 65 Year
  Sex: Female
  Weight: 59.5 kg

DRUGS (2)
  1. CEREZYME [Suspect]
     Indication: GAUCHER'S DISEASE
     Dosage: 58.8 U/KG, QOW, INTRAVENOUS
     Route: 042
  2. ATIVAN [Concomitant]

REACTIONS (8)
  - ANXIETY [None]
  - BREAST CANCER [None]
  - BURNING SENSATION [None]
  - FATIGUE [None]
  - NAUSEA [None]
  - PAIN [None]
  - RASH MACULAR [None]
  - TINNITUS [None]
